FAERS Safety Report 7146664-3 (Version None)
Quarter: 2010Q4

REPORT INFORMATION
  Report Type: 
  Country: None (occurrence: None)
  Receive Date: 20101208
  Receipt Date: 20101201
  Transmission Date: 20110411
  Serious: Yes (Death, Other)
  Sender: FDA-Public Use
  Company Number: JP-BAXTER-2010BH028616

PATIENT
  Age: 21 Month
  Sex: Male

DRUGS (3)
  1. IFOSFAMIDE [Suspect]
     Indication: EPENDYMOMA MALIGNANT
     Route: 065
  2. CISPLATIN [Suspect]
     Indication: EPENDYMOMA MALIGNANT
     Route: 065
  3. ETOPOSIDE [Suspect]
     Indication: EPENDYMOMA MALIGNANT
     Route: 065

REACTIONS (3)
  - NEUTROPHIL COUNT DECREASED [None]
  - PNEUMONIA FUNGAL [None]
  - SEPSIS [None]
